FAERS Safety Report 6058426-9 (Version None)
Quarter: 2009Q1

REPORT INFORMATION
  Report Type: 
  Country: None (occurrence: None)
  Receive Date: 20090130
  Receipt Date: 20090121
  Transmission Date: 20090719
  Serious: Yes (Death)
  Sender: FDA-Public Use
  Company Number: US-JNJFOC-20090105780

PATIENT
  Sex: Female
  Weight: 59.88 kg

DRUGS (9)
  1. DURAGESIC-100 [Suspect]
     Indication: DRUG USE FOR UNKNOWN INDICATION
     Route: 062
  2. AMITRIPTYLINE [Suspect]
     Indication: DRUG USE FOR UNKNOWN INDICATION
  3. DIAZEPAM [Suspect]
     Indication: DRUG USE FOR UNKNOWN INDICATION
  4. PROZAC [Suspect]
     Indication: DRUG USE FOR UNKNOWN INDICATION
  5. PHENOBARBITAL TAB [Concomitant]
  6. TRAZODONE HCL [Concomitant]
  7. CYCLOBENZAPRINE HCL [Concomitant]
  8. CITALOPRAM [Concomitant]
  9. PROMETHAZINE [Concomitant]

REACTIONS (2)
  - DRUG TOXICITY [None]
  - WRONG TECHNIQUE IN DRUG USAGE PROCESS [None]
